FAERS Safety Report 7504447-6 (Version None)
Quarter: 2011Q2

REPORT INFORMATION
  Report Type: 
  Country: None (occurrence: None)
  Receive Date: 20110525
  Receipt Date: 20090306
  Transmission Date: 20111010
  Serious: Yes (Hospitalization, Other)
  Sender: FDA-Public Use
  Company Number: US-BAYER-2011-007562

PATIENT
  Age: 50 Year
  Sex: Female
  Weight: 91 kg

DRUGS (13)
  1. COUMADIN [Concomitant]
     Dosage: UNK
  2. TRASYLOL [Suspect]
     Dosage: 50 CC/HR
     Route: 042
     Dates: start: 20030709, end: 20030709
  3. TRASYLOL [Suspect]
     Indication: CORONARY ARTERY BYPASS
     Dosage: 200 ML PRIME PUMP
     Route: 050
     Dates: start: 20030709
  4. PROTAMINE SULFATE [Concomitant]
     Dosage: 370 MG
     Route: 042
     Dates: start: 20030709, end: 20030709
  5. LASIX [Concomitant]
     Dosage: 20 MG
     Route: 042
     Dates: start: 20030709, end: 20030101
  6. VANCOMYCIN [Concomitant]
     Dosage: 1 GM
     Route: 042
     Dates: start: 20030709, end: 20030709
  7. INSULIN [Concomitant]
     Dosage: 14 UNITS
     Route: 042
     Dates: start: 20030709, end: 20030709
  8. GLUCOPHAGE [Concomitant]
     Dosage: 100 MG
     Route: 048
     Dates: start: 20000711
  9. HEPARIN [Concomitant]
     Dosage: 25,000 UNITS
     Route: 042
     Dates: start: 20030709, end: 20030709
  10. DOBUTREX [Concomitant]
     Dosage: 5 CC
     Route: 042
     Dates: start: 20030709, end: 20030709
  11. ALBUMIN (HUMAN) [Concomitant]
     Dosage: 25 GMS
     Route: 042
     Dates: start: 20030709, end: 20030709
  12. MANNITOL [Concomitant]
     Dosage: 25 GMS
     Route: 042
     Dates: start: 20030709, end: 20030709
  13. TRASYLOL [Suspect]
     Indication: MITRAL VALVE REPAIR
     Dosage: 200 ML
     Route: 042
     Dates: start: 20030709, end: 20030709

REACTIONS (13)
  - RENAL INJURY [None]
  - ANXIETY [None]
  - INJURY [None]
  - RENAL IMPAIRMENT [None]
  - EMOTIONAL DISTRESS [None]
  - STRESS [None]
  - MULTI-ORGAN FAILURE [None]
  - UNEVALUABLE EVENT [None]
  - FEAR [None]
  - RENAL FAILURE [None]
  - PAIN [None]
  - ANHEDONIA [None]
  - CEREBROVASCULAR ACCIDENT [None]
